FAERS Safety Report 8595368-9 (Version None)
Quarter: 2012Q3

REPORT INFORMATION
  Report Type: 
  Country: None (occurrence: None)
  Receive Date: 20120807
  Receipt Date: 20120807
  Transmission Date: 20120928
  Serious: No
  Sender: FDA-Public Use
  Company Number: None

PATIENT
  Age: 61 Year
  Sex: Male
  Weight: 108 kg

DRUGS (2)
  1. ISOVUE-128 [Suspect]
     Indication: COMPUTERISED TOMOGRAM
     Dosage: 130ML ONE TIME
     Dates: start: 20120423
  2. ISOVUE-128 [Suspect]
     Indication: SCAN WITH CONTRAST
     Dosage: 130ML ONE TIME
     Dates: start: 20120423

REACTIONS (6)
  - PRURITUS [None]
  - ERYTHEMA [None]
  - FLUSHING [None]
  - URTICARIA [None]
  - THROAT IRRITATION [None]
  - CONTRAST MEDIA REACTION [None]
